FAERS Safety Report 5925399-6 (Version None)
Quarter: 2008Q3

REPORT INFORMATION
  Report Type: 
  Country: None (occurrence: None)
  Receive Date: 20080909
  Receipt Date: 20071113
  Transmission Date: 20090109
  Serious: Yes (Death, Hospitalization)
  Sender: FDA-Public Use
  Company Number: 163-20785-07090864

PATIENT
  Age: 71 Year
  Sex: Female
  Weight: 56.3 kg

DRUGS (21)
  1. THALOMID [Suspect]
     Indication: MULTIPLE MYELOMA
     Dosage: 200 MG, ORAL
     Route: 048
     Dates: start: 20061216, end: 20061219
  2. DEXAMETHASONE TAB [Suspect]
     Indication: MULTIPLE MYELOMA
     Dosage: 40 MG
     Dates: start: 20061216, end: 20061219
  3. VELCADE [Suspect]
     Indication: MULTIPLE MYELOMA
     Dosage: 1.5 MG
     Dates: start: 20061213, end: 20061223
  4. CISPLATIN [Suspect]
     Indication: MULTIPLE MYELOMA
     Dosage: 15 MG
     Dates: start: 20061216, end: 20061219
  5. ADRIAMYCIN PFS [Suspect]
     Indication: MULTIPLE MYELOMA
     Dosage: 15 MG
     Dates: start: 20061216, end: 20061219
  6. CYCLOPHOSPHAMIDE [Suspect]
     Indication: MULTIPLE MYELOMA
     Dosage: 612 MG
     Dates: start: 20061216, end: 20061219
  7. ETOPOSIDE [Suspect]
     Indication: MULTIPLE MYELOMA
     Dosage: 61 MG
     Dates: start: 20061216, end: 20061219
  8. DIFLUCAN (FLUCONAZOLE) (200 MILLIGRAM, TABLETS) [Concomitant]
  9. ACYCLOVIR (ACICLOVIR) (400 MILLIGRAM, TABLETS) [Concomitant]
  10. PROTONIX (PANTOPRAZOLE) (40 MILLIGRAM, TABLETS) [Concomitant]
  11. SENNA S (SENNA) (TABLETS) [Concomitant]
  12. COLACE (DOCUSATE SODIUM) (100 MILLIGRAM, CAPSULES) [Concomitant]
  13. OXYCONTIN (OXYCODONE HYDROCHLORIDE) (20 MILLIGRAM, TABLETS) [Concomitant]
  14. FLAGYL (METRONIDAZOLE) (500 MILLIGRAM, TABLETS) [Concomitant]
  15. PRIMAXIN (PRIMAXIN) (250 MILLIGRM, SOLUTION) [Concomitant]
  16. FOLIC ACID (FOLIC ACID) (1 MILLIGRM, TABLETS) [Concomitant]
  17. MULTIVITAMINS (MULTIVITAMINS) (TABLETS) [Concomitant]
  18. VANCOCIN HCL (VANCOMYCIN HYDROCHLORIDE) (250 MILLIGRAM, TABLETS) [Concomitant]
  19. TAMIFLU (OSELTAMIVIR) (75 MILLIGRAM, CAPSULES) [Concomitant]
  20. NEUPOGEN (FILGRASTIM) (SOLUTION) [Concomitant]
  21. LASIX [Concomitant]

REACTIONS (4)
  - COLITIS [None]
  - MULTI-ORGAN FAILURE [None]
  - MULTIPLE MYELOMA [None]
  - PNEUMONIA [None]
